FAERS Safety Report 8244969-6 (Version None)
Quarter: 2012Q1

REPORT INFORMATION
  Report Type: 
  Country: None (occurrence: None)
  Receive Date: 20120329
  Receipt Date: 20111024
  Transmission Date: 20120608
  Serious: No
  Sender: FDA-Public Use
  Company Number: US-MYLANLABS-2011S1022182

PATIENT
  Age: 69 Year
  Sex: Male

DRUGS (4)
  1. FENTANYL-100 [Suspect]
     Indication: PAIN
     Dosage: CHANGED Q72H
     Route: 062
     Dates: start: 20050101, end: 20111023
  2. LORAZEPAM [Concomitant]
     Indication: ANXIETY
     Route: 048
     Dates: start: 20110401
  3. MORPHINE [Suspect]
     Indication: BREAKTHROUGH PAIN
     Route: 048
     Dates: start: 20110801
  4. OXYCODONE HCL [Suspect]
     Indication: BREAKTHROUGH PAIN
     Route: 048
     Dates: start: 20110801, end: 20111001

REACTIONS (3)
  - ACCIDENTAL OVERDOSE [None]
  - INCORRECT DRUG ADMINISTRATION DURATION [None]
  - POTENTIATING DRUG INTERACTION [None]
